FAERS Safety Report 5793003-6 (Version None)
Quarter: 2008Q2

REPORT INFORMATION
  Report Type: 
  Country: None (occurrence: None)
  Receive Date: 20080627
  Receipt Date: 20080617
  Transmission Date: 20081010
  Serious: Yes (Other)
  Sender: FDA-Public Use
  Company Number: US-ROCHE-539309

PATIENT
  Sex: Female
  Weight: 80.3 kg

DRUGS (12)
  1. BONIVA [Suspect]
     Indication: OSTEOPENIA
     Route: 065
     Dates: start: 20080101
  2. NEXIUM [Concomitant]
  3. SINGULAIR [Concomitant]
  4. ATENOLOL [Concomitant]
  5. LIPITOR [Concomitant]
  6. UNSPECIFIED MEDICATION [Concomitant]
     Dosage: DRUG REPORTED AS HCGT
  7. LEVSIN SL [Concomitant]
  8. RHINOCORT [Concomitant]
  9. ALPRAZOLAM [Concomitant]
  10. CLARINEX [Concomitant]
  11. CLARINEX [Concomitant]
  12. CLARINEX [Concomitant]

REACTIONS (8)
  - ANOREXIA [None]
  - CHEST PAIN [None]
  - DYSPNOEA [None]
  - MALAISE [None]
  - MYALGIA [None]
  - PAIN [None]
  - PAIN IN JAW [None]
  - PARALYSIS [None]
